FAERS Safety Report 7083339-3 (Version None)
Quarter: 2010Q4

REPORT INFORMATION
  Report Type: 
  Country: None (occurrence: None)
  Receive Date: 20101104
  Receipt Date: 20101101
  Transmission Date: 20110411
  Serious: Yes (Death)
  Sender: FDA-Public Use
  Company Number: PHHY2010NL73910

PATIENT
  Age: 70 Year
  Sex: Female
  Weight: 54 kg

DRUGS (2)
  1. ALISKIREN ALI+TAB [Suspect]
  2. PERINDOPRIL [Concomitant]
     Dosage: 8 MG

REACTIONS (1)
  - DEATH [None]
